FAERS Safety Report 6847355-6 (Version None)
Quarter: 2010Q3

REPORT INFORMATION
  Report Type: 
  Country: None (occurrence: None)
  Receive Date: 20100716
  Receipt Date: 20100715
  Transmission Date: 20110219
  Serious: Yes (Other)
  Sender: FDA-Public Use
  Company Number: US-ROXANE LABORATORIES, INC.-2010-RO-00855RO

PATIENT
  Age: 69 Year
  Sex: Female

DRUGS (7)
  1. PREDNISONE [Suspect]
     Indication: COLITIS
     Dates: start: 20100501
  2. XALATAN [Suspect]
     Indication: GLAUCOMA
     Dates: start: 20090101
  3. CATAPRES 3 [Concomitant]
     Indication: HYPERTENSION
  4. HYDROCHLOROTHIAZIDE [Concomitant]
  5. IMURAN [Concomitant]
     Indication: COLITIS
  6. LYRICA [Concomitant]
  7. SIMVASTATIN [Concomitant]
     Indication: BLOOD CHOLESTEROL

REACTIONS (1)
  - BLOOD GLUCOSE INCREASED [None]
